FAERS Safety Report 4703807-6 (Version None)
Quarter: 2005Q2

REPORT INFORMATION
  Report Type: 
  Country: None (occurrence: None)
  Receive Date: 20050630
  Receipt Date: 20050615
  Transmission Date: 20051028
  Serious: Yes (Other)
  Sender: FDA-Public Use
  Company Number: BR-GLAXOSMITHKLINE-A0563288A

PATIENT
  Age: 43 Year
  Sex: Female
  Weight: 57 kg

DRUGS (2)
  1. NIQUITIN CQ 21MG [Suspect]
     Indication: SMOKING CESSATION THERAPY
     Route: 062
     Dates: start: 20050615
  2. UNKNOWN ANTI-TUBERCULOSIS DRUGS [Concomitant]

REACTIONS (5)
  - CHILLS [None]
  - HAEMATEMESIS [None]
  - INTENTIONAL MISUSE [None]
  - PALPITATIONS [None]
  - VISUAL DISTURBANCE [None]
